FAERS Safety Report 17000796 (Version 1)
Quarter: 2019Q4

REPORT INFORMATION
  Report Type: Spontaneous
  Country: FR (occurrence: FR)
  Receive Date: 20191106
  Receipt Date: 20191106
  Transmission Date: 20200122
  Serious: Yes (Life-Threatening, Other)
  Sender: FDA-Public Use
  Company Number: FR-PFIZER INC-2019477234

PATIENT
  Age: 70 Year
  Sex: Male
  Weight: 125 kg

DRUGS (7)
  1. ADENURIC [Suspect]
     Active Substance: FEBUXOSTAT
     Dosage: 1 DF, 1X/DAY
     Route: 048
     Dates: start: 201909, end: 2019
  2. EUCREAS [Suspect]
     Active Substance: METFORMIN HYDROCHLORIDE\VILDAGLIPTIN
     Indication: TYPE 2 DIABETES MELLITUS
     Dosage: 1 DF, 1X/DAY (STRENGTH FOR EUCREAS: 50 MG/1000 MG)
     Route: 048
     Dates: start: 201909, end: 2019
  3. LASILIX [Suspect]
     Active Substance: FUROSEMIDE
     Indication: HYPERTENSION
     Dosage: 1 DF, 1X/DAY
     Route: 048
     Dates: start: 201909, end: 2019
  4. PREVISCAN (FLUINDIONE) [Suspect]
     Active Substance: FLUINDIONE
     Indication: CARDIOMYOPATHY
     Dosage: 1.38 DF, 1X/DAY (1 TABLET + 1/4 TABLET  AND 1 TABLET + 1/2 TABLET IN ALTERNATION)
     Route: 048
     Dates: start: 201909, end: 2019
  5. ATORVASTATIN CALCIUM. [Suspect]
     Active Substance: ATORVASTATIN CALCIUM
     Indication: DYSLIPIDAEMIA
     Dosage: 1 DF, 1X/DAY
     Route: 048
     Dates: start: 201909, end: 2019
  6. TEMERIT [Suspect]
     Active Substance: NEBIVOLOL
     Indication: HYPERTENSION
     Dosage: 1 DF, 1X/DAY
     Route: 048
     Dates: start: 201909, end: 2019
  7. METFORMINE HCL [Suspect]
     Active Substance: METFORMIN HYDROCHLORIDE
     Indication: TYPE 2 DIABETES MELLITUS
     Dosage: 1 DF, 1X/DAY
     Route: 048
     Dates: start: 201909, end: 2019

REACTIONS (6)
  - Blood creatinine increased [Unknown]
  - Shock haemorrhagic [Recovered/Resolved]
  - Haematoma [Not Recovered/Not Resolved]
  - Blood lactic acid increased [Recovered/Resolved]
  - Haemoglobin decreased [Unknown]
  - Acute kidney injury [Recovering/Resolving]

NARRATIVE: CASE EVENT DATE: 20190924
